FAERS Safety Report 23251392 (Version 1)
Quarter: 2023Q4

REPORT INFORMATION
  Report Type: Spontaneous
  Country: IT (occurrence: IT)
  Receive Date: 20231201
  Receipt Date: 20231201
  Transmission Date: 20240110
  Serious: Yes (Other)
  Sender: FDA-Public Use
  Company Number: IT-AMGEN-ITASP2023198788

PATIENT
  Age: 71 Year
  Sex: Female

DRUGS (2)
  1. PROLIA [Suspect]
     Active Substance: DENOSUMAB
     Indication: Osteoporosis
     Dosage: 60 MILLIGRAM
     Route: 065
     Dates: start: 202304
  2. CALCITRIOL [Concomitant]
     Active Substance: CALCITRIOL

REACTIONS (9)
  - Nephrolithiasis [Unknown]
  - Renal failure [Unknown]
  - Mixed anxiety and depressive disorder [Unknown]
  - Migraine without aura [Unknown]
  - Skin reaction [Unknown]
  - Chest pain [Unknown]
  - Pyrexia [Unknown]
  - Dry mouth [Unknown]
  - Arthralgia [Unknown]

NARRATIVE: CASE EVENT DATE: 20230101
